FAERS Safety Report 23468017 (Version 1)
Quarter: 2024Q1

REPORT INFORMATION
  Report Type: Spontaneous
  Country: IN (occurrence: IN)
  Receive Date: 20240201
  Receipt Date: 20240201
  Transmission Date: 20240410
  Serious: Yes (Other)
  Sender: FDA-Public Use
  Company Number: IN-PRINSTON PHARMACEUTICAL INC.-2024PRN00030

PATIENT
  Sex: Female

DRUGS (7)
  1. GLIMEPIRIDE [Suspect]
     Active Substance: GLIMEPIRIDE
     Indication: Type 2 diabetes mellitus
     Dosage: 2 MG, 1X/DAY
     Route: 048
  2. METFORMIN HYDROCHLORIDE [Suspect]
     Active Substance: METFORMIN HYDROCHLORIDE
     Indication: Type 2 diabetes mellitus
     Dosage: 500 MG, 1X/DAY [SR]
  3. VOGLIBOSE [Suspect]
     Active Substance: VOGLIBOSE
     Indication: Type 2 diabetes mellitus
     Dosage: 0.2 MG, 1X/DAY
  4. CLOMIPHENE CITRATE [Suspect]
     Active Substance: CLOMIPHENE CITRATE
     Indication: Polycystic ovarian syndrome
     Dosage: 100 MG, 1X/DAY
     Route: 048
  5. VITAMIN D NOS [Concomitant]
     Active Substance: VITAMIN D NOS
     Indication: Polycystic ovarian syndrome
     Dosage: 10000 IU, 2X/WEEK
  6. CALCIUM [Concomitant]
     Active Substance: CALCIUM
     Indication: Polycystic ovarian syndrome
     Dosage: 1250 MG, 2X/WEEK
  7. CAFFEINE;ERGOTAMINE;PARACETAMOL;PROCHLORPERAZINE [Concomitant]
     Dosage: UNK, AS NEEDED

REACTIONS (2)
  - Erythema multiforme [Recovered/Resolved]
  - Ageusia [Recovered/Resolved]
